FAERS Safety Report 7794502-8 (Version None)
Quarter: 2011Q4

REPORT INFORMATION
  Report Type: 
  Country: None (occurrence: None)
  Receive Date: 20111004
  Receipt Date: 20110927
  Transmission Date: 20120403
  Serious: Yes (Hospitalization)
  Sender: FDA-Public Use
  Company Number: NL-SANOFI-AVENTIS-2011SA063800

PATIENT
  Age: 72 Year
  Sex: Male

DRUGS (11)
  1. ASCAL [Concomitant]
     Route: 048
  2. XELODA [Suspect]
     Route: 048
  3. PROSCAR [Concomitant]
     Route: 048
  4. PERSANTIN [Concomitant]
     Route: 048
  5. SIMVASTATIN [Concomitant]
     Route: 048
  6. OXALIPLATIN [Suspect]
     Route: 042
  7. DOXAZOSIN MESYLATE [Concomitant]
     Route: 048
  8. METFORMIN HCL [Concomitant]
     Route: 048
  9. METOPROLOL TARTRATE [Concomitant]
     Route: 048
  10. HYDROCHLOROTHIAZIDE [Concomitant]
     Route: 048
  11. LOSARTAN POTASSIUM [Concomitant]
     Route: 048

REACTIONS (1)
  - LACUNAR INFARCTION [None]
